FAERS Safety Report 6993693-6 (Version None)
Quarter: 2010Q3

REPORT INFORMATION
  Report Type: 
  Country: None (occurrence: None)
  Receive Date: 20100917
  Receipt Date: 20100721
  Transmission Date: 20110219
  Serious: Yes (Other)
  Sender: FDA-Public Use
  Company Number: US-ASTRAZENECA-2010SE23567

PATIENT
  Age: 15785 Day
  Sex: Female
  Weight: 88.5 kg

DRUGS (11)
  1. SEROQUEL [Suspect]
     Indication: BIPOLAR DISORDER
     Route: 048
     Dates: start: 20030401
  2. SEROQUEL [Suspect]
     Route: 048
     Dates: start: 20040915
  3. SEROQUEL [Suspect]
     Route: 048
     Dates: start: 20051101
  4. SEROQUEL [Suspect]
     Route: 048
     Dates: start: 20070417, end: 20100609
  5. GEODON [Suspect]
  6. ABILIFY [Concomitant]
     Indication: BIPOLAR I DISORDER
     Route: 048
     Dates: start: 20091208, end: 20100415
  7. SOMA [Concomitant]
     Dosage: ONCE AT NIGHT
  8. HYDROCODONE [Concomitant]
  9. XANAX [Concomitant]
     Dosage: AS NEEDED
  10. TRAMADOL [Concomitant]
     Dosage: AS NEEDED
  11. ZANTAC [Concomitant]

REACTIONS (2)
  - DYSKINESIA [None]
  - EXTRAPYRAMIDAL DISORDER [None]
